FAERS Safety Report 25608312 (Version 1)
Quarter: 2025Q3

REPORT INFORMATION
  Report Type: Spontaneous
  Country: US (occurrence: US)
  Receive Date: 20250725
  Receipt Date: 20250725
  Transmission Date: 20251020
  Serious: Yes (Life-Threatening, Hospitalization)
  Sender: MERCK SHARP & DOHME LLC
  Company Number: US-009507513-2310802

PATIENT
  Age: 79 Year
  Sex: Male

DRUGS (1)
  1. PEMBROLIZUMAB [Suspect]
     Active Substance: PEMBROLIZUMAB
     Indication: Lung adenocarcinoma

REACTIONS (2)
  - Pulmonary alveolar haemorrhage [Recovering/Resolving]
  - Organising pneumonia [Recovering/Resolving]
